FAERS Safety Report 10400327 (Version 2)
Quarter: 2014Q3

REPORT INFORMATION
  Report Type: Spontaneous
  Country: US (occurrence: US)
  Receive Date: 20140821
  Receipt Date: 20140821
  Transmission Date: 20150326
  Serious: Yes (Life-Threatening, Hospitalization, Disabling, Other)
  Sender: FDA-Public Use
  Company Number: US-TARO-2012P1010991

PATIENT
  Age: 62 Year
  Sex: Female

DRUGS (10)
  1. EFFEXOR [Suspect]
     Active Substance: VENLAFAXINE HYDROCHLORIDE
     Indication: DEPRESSION
  2. HEPARIN [Suspect]
     Active Substance: HEPARIN SODIUM
     Dates: start: 201005, end: 201005
  3. OMEPRAZOLE. [Suspect]
     Active Substance: OMEPRAZOLE
     Indication: GASTROOESOPHAGEAL REFLUX DISEASE
     Dates: end: 20120828
  4. TIMOLOL [Suspect]
     Active Substance: TIMOLOL
     Dosage: BID
  5. BRINZOLAMIDE [Suspect]
     Active Substance: BRINZOLAMIDE
     Dosage: BID
  6. VITAMIN A [Suspect]
     Active Substance: VITAMIN A
  7. OMEPRAZOLE. [Suspect]
     Active Substance: OMEPRAZOLE
     Dosage: Q2D
     Dates: start: 2012
  8. AMBIEN [Suspect]
     Active Substance: ZOLPIDEM TARTRATE
  9. LAMOTRIGINE TABLETS 25 MG [Suspect]
     Active Substance: LAMOTRIGINE
     Indication: DEPRESSION
     Dates: start: 20100331, end: 2010
  10. TRAVATAN [Suspect]
     Active Substance: TRAVOPROST

REACTIONS (63)
  - Respiratory failure [Recovered/Resolved]
  - Coagulopathy [Recovered/Resolved]
  - Ulcerative keratitis [Unknown]
  - Pleural disorder [Unknown]
  - Procedural complication [Unknown]
  - Conjunctival haemorrhage [Unknown]
  - Cataract [Unknown]
  - Toxic epidermal necrolysis [Recovered/Resolved with Sequelae]
  - Ileus paralytic [Recovered/Resolved]
  - Keloid scar [Not Recovered/Not Resolved]
  - Symblepharon [Not Recovered/Not Resolved]
  - Hordeolum [Unknown]
  - Breast mass [Recovered/Resolved]
  - Hyperlipidaemia [Unknown]
  - Keratitis [Unknown]
  - Deep vein thrombosis [Recovered/Resolved]
  - Renal failure acute [Recovered/Resolved]
  - Anaemia [Recovered/Resolved]
  - Atrial fibrillation [Recovered/Resolved]
  - Poisoning [Unknown]
  - Lacrimation decreased [Not Recovered/Not Resolved]
  - Meibomian gland dysfunction [Unknown]
  - Diarrhoea [Recovered/Resolved]
  - Vitreous floaters [Unknown]
  - Large intestine polyp [Recovered/Resolved]
  - Pneumonia staphylococcal [Recovered/Resolved]
  - Iridocele [Unknown]
  - Renal failure acute [Unknown]
  - Device related infection [Unknown]
  - Dry eye [Unknown]
  - Off label use [Unknown]
  - Blepharitis [Unknown]
  - Pneumonia pseudomonal [Unknown]
  - Trichiasis [Unknown]
  - Inflammation [Unknown]
  - Staphylococcus test [Unknown]
  - Infection [Recovered/Resolved]
  - Eye pain [Unknown]
  - Fatigue [Unknown]
  - Disability [Not Recovered/Not Resolved]
  - Septic shock [Recovered/Resolved]
  - Pleural effusion [Recovered/Resolved]
  - Corneal opacity [Unknown]
  - Mental status changes [Not Recovered/Not Resolved]
  - Staphylococcal infection [Recovered/Resolved]
  - Dysphagia [Recovering/Resolving]
  - Sepsis [Unknown]
  - Disseminated intravascular coagulation [Unknown]
  - Blepharitis [Unknown]
  - Senile osteoporosis [Unknown]
  - Stevens-Johnson syndrome [Recovered/Resolved with Sequelae]
  - Blindness [Not Recovered/Not Resolved]
  - Injury [Unknown]
  - Renal tubular necrosis [Unknown]
  - Anaemia of chronic disease [Unknown]
  - Iridocyclitis [Unknown]
  - Eye irritation [Recovering/Resolving]
  - Corneal disorder [Unknown]
  - Heparin-induced thrombocytopenia [Recovered/Resolved]
  - Keratopathy [Not Recovered/Not Resolved]
  - Glaucoma [Unknown]
  - Gastrooesophageal reflux disease [Unknown]
  - Insomnia [Unknown]

NARRATIVE: CASE EVENT DATE: 20100428
